FAERS Safety Report 4307943-8 (Version None)
Quarter: 2004Q1

REPORT INFORMATION
  Report Type: 
  Country: None (occurrence: None)
  Receive Date: 20040301
  Receipt Date: 20030121
  Transmission Date: 20041129
  Serious: No
  Sender: FDA-Public Use
  Company Number: US-BRISTOL-MYERS SQUIBB COMPANY-12163382

PATIENT
  Age: 46 Year
  Sex: Male
  Weight: 107 kg

DRUGS (4)
  1. GLUCOPHAGE [Suspect]
     Indication: DIABETES MELLITUS NON-INSULIN-DEPENDENT
     Route: 048
  2. VICODIN [Concomitant]
  3. LOVENOX [Concomitant]
  4. DILANTIN [Concomitant]

REACTIONS (1)
  - DYSGEUSIA [None]
